FAERS Safety Report 6418742-5 (Version None)
Quarter: 2009Q4

REPORT INFORMATION
  Report Type: 
  Country: None (occurrence: None)
  Receive Date: 20091026
  Receipt Date: 20091014
  Transmission Date: 20100525
  Serious: Yes (Hospitalization, Disabling, Other)
  Sender: FDA-Public Use
  Company Number: 2009AC000238

PATIENT
  Age: 30 Year
  Sex: Male

DRUGS (34)
  1. DIGOXIN [Suspect]
     Dosage: 0.25 MG; QD; PO
     Route: 048
  2. DIGOXIN [Suspect]
     Indication: ATRIAL FIBRILLATION
     Dosage: 0.125 MG; PO
     Route: 048
     Dates: start: 20010717
  3. AMIODARONE [Concomitant]
  4. BUMEX [Concomitant]
  5. COREG [Concomitant]
  6. COZAAR [Concomitant]
  7. POTASSIUM CHLORIDE [Concomitant]
  8. ALDACTONE [Concomitant]
  9. ZAROXOLYN [Concomitant]
  10. WARFARIN SODIUM [Concomitant]
  11. BENZOYL PEROXIDE [Concomitant]
  12. SPIRONOLACTONE [Concomitant]
  13. BUMETANIDE [Concomitant]
  14. AMOXICILLIN [Concomitant]
  15. AZITHROMYCIN [Concomitant]
  16. FLOVENT [Concomitant]
  17. CEPHALEXIN [Concomitant]
  18. ACETAMINOPHEN [Concomitant]
  19. FUROSEMIDE [Concomitant]
  20. TOBRAMYCIN [Concomitant]
  21. DOXYCLINE [Concomitant]
  22. KLOR-CON [Concomitant]
  23. LEVAQUIN [Concomitant]
  24. PROAIR HFA [Concomitant]
  25. HYDROCODONE [Concomitant]
  26. TRAMADOL HCL [Concomitant]
  27. AMRIX [Concomitant]
  28. KETOCONAZOLE [Concomitant]
  29. ONDANSETRON HCL [Concomitant]
  30. BETAMETHASONE [Concomitant]
  31. ALLOPURINOL [Concomitant]
  32. METHYLPREDNISOLONE 4MG TAB [Concomitant]
  33. POTASSIUM CHLORIDE [Concomitant]
  34. CELEBREX [Concomitant]

REACTIONS (21)
  - ABDOMINAL DISTENSION [None]
  - ANXIETY [None]
  - ATRIAL FIBRILLATION [None]
  - CARDIOACTIVE DRUG LEVEL ABOVE THERAPEUTIC [None]
  - CARDIOMEGALY [None]
  - COUGH [None]
  - DEVICE STIMULATION ISSUE [None]
  - DYSPNOEA [None]
  - FATIGUE [None]
  - FEELING ABNORMAL [None]
  - HAEMATURIA [None]
  - INJURY [None]
  - IRRITABILITY [None]
  - PAIN [None]
  - PAIN IN EXTREMITY [None]
  - PLEURAL FIBROSIS [None]
  - QUALITY OF LIFE DECREASED [None]
  - RALES [None]
  - SPLENOMEGALY [None]
  - VENTRICULAR FAILURE [None]
  - WEIGHT INCREASED [None]
